FAERS Safety Report 4995759-9 (Version None)
Quarter: 2006Q2

REPORT INFORMATION
  Report Type: 
  Country: None (occurrence: None)
  Receive Date: 20060508
  Receipt Date: 20060502
  Transmission Date: 20061013
  Serious: Yes (Hospitalization)
  Sender: FDA-Public Use
  Company Number: PHRM2006FR01464

PATIENT
  Age: 46 Year
  Sex: Female

DRUGS (3)
  1. LIPANTHYL ^FOURNIER^ [Concomitant]
     Dosage: 160 MG, QD
     Route: 048
  2. LOPRESSOR [Concomitant]
     Dosage: 1 DF, QD
     Route: 048
  3. TAREG [Suspect]
     Indication: HYPERTENSION
     Dosage: 80 MG, QD
     Route: 048

REACTIONS (2)
  - BILIARY COLIC [None]
  - CHOLELITHIASIS [None]
